FAERS Safety Report 10432693 (Version 1)
Quarter: 2014Q3

REPORT INFORMATION
  Report Type: Spontaneous
  Country: BR (occurrence: BR)
  Receive Date: 20140905
  Receipt Date: 20140905
  Transmission Date: 20150326
  Serious: Yes (Other)
  Sender: FDA-Public Use
  Company Number: BR-BAYER-2014-130735

PATIENT
  Age: 42 Year
  Sex: Female

DRUGS (2)
  1. ATENOLOL. [Concomitant]
     Active Substance: ATENOLOL
     Indication: HEART INJURY
     Dosage: UNK
     Route: 048
     Dates: start: 201301
  2. MIRENA [Suspect]
     Active Substance: LEVONORGESTREL
     Indication: LEIOMYOMA
     Dosage: 20 MCG/24HR, CONT
     Route: 015
     Dates: start: 201207

REACTIONS (3)
  - Off label use [None]
  - Amenorrhoea [Not Recovered/Not Resolved]
  - Cardiac operation [None]

NARRATIVE: CASE EVENT DATE: 201207
